FAERS Safety Report 12410136 (Version 3)
Quarter: 2016Q3

REPORT INFORMATION
  Report Type: Report from Study
  Country: JP (occurrence: JP)
  Receive Date: 20160527
  Receipt Date: 20160913
  Transmission Date: 20161109
  Serious: Yes (Death, Hospitalization, Other)
  Sender: FDA-Public Use
  Company Number: JP-BRISTOL-MYERS SQUIBB COMPANY-BMS-2016-040690

PATIENT
  Age: 78 Year
  Sex: Female

DRUGS (4)
  1. NIVOLUMAB [Suspect]
     Active Substance: NIVOLUMAB
     Indication: MALIGNANT MELANOMA
     Dosage: 2 MG/KG, UNK
     Route: 041
     Dates: start: 20160113, end: 20160113
  2. NIVOLUMAB [Suspect]
     Active Substance: NIVOLUMAB
     Dosage: 2 MG/KG, UNK
     Route: 041
     Dates: start: 20160226, end: 20160226
  3. NIVOLUMAB [Suspect]
     Active Substance: NIVOLUMAB
     Dosage: 2 MG/KG, UNK
     Route: 041
     Dates: start: 20160203, end: 20160203
  4. NIVOLUMAB [Suspect]
     Active Substance: NIVOLUMAB
     Dosage: 2 MG/KG, UNK
     Route: 041
     Dates: start: 20160325, end: 20160325

REACTIONS (4)
  - Hepatomegaly [Unknown]
  - Lacunar infarction [Unknown]
  - Hepatic function abnormal [Fatal]
  - Malignant neoplasm progression [Fatal]

NARRATIVE: CASE EVENT DATE: 20160317
